FAERS Safety Report 8123657-0 (Version None)
Quarter: 2012Q1

REPORT INFORMATION
  Report Type: 
  Country: None (occurrence: None)
  Receive Date: 20120208
  Receipt Date: 20120206
  Transmission Date: 20120608
  Serious: Yes (Life-Threatening, Hospitalization, Other)
  Sender: FDA-Public Use
  Company Number: PHHY2011JP68813

PATIENT
  Sex: Male

DRUGS (40)
  1. CLOZARIL [Suspect]
     Dosage: 350 MG, UNK
     Route: 048
     Dates: start: 20110630, end: 20110706
  2. CLOZARIL [Suspect]
     Dosage: 375 MG, UNK
     Route: 048
     Dates: start: 20110707, end: 20110720
  3. NITRAZEPAM [Concomitant]
     Indication: SCHIZOPHRENIA, DISORGANISED TYPE
     Dosage: 10 MG, UNK
     Route: 048
     Dates: start: 20110322, end: 20110801
  4. CLOZARIL [Suspect]
     Indication: SCHIZOPHRENIA, DISORGANISED TYPE
     Dosage: 12.5 MG, UNK
     Route: 048
     Dates: start: 20110330, end: 20110330
  5. CLOZARIL [Suspect]
     Dosage: 100 MG, UNK
     Route: 048
     Dates: start: 20110407, end: 20110410
  6. CLOZARIL [Suspect]
     Dosage: 150 MG, UNK
     Route: 048
     Dates: start: 20110414, end: 20110417
  7. CLOZARIL [Suspect]
     Dosage: 200 MG, UNK
     Route: 048
     Dates: start: 20110421, end: 20110518
  8. CLOZARIL [Suspect]
     Dosage: 275 MG, UNK
     Route: 048
     Dates: start: 20110526, end: 20110601
  9. CLOZARIL [Suspect]
     Dosage: 400 MG, UNK
     Route: 048
     Dates: start: 20110721, end: 20110727
  10. QUETIAPINE FUMARATE [Concomitant]
     Route: 048
  11. LITHIUM CARBONATE [Concomitant]
     Dosage: 800 MG, UNK
     Route: 048
     Dates: end: 20110801
  12. CLONAZEPAM [Concomitant]
     Indication: SCHIZOPHRENIA, DISORGANISED TYPE
     Dosage: 3 MG, UNK
     Route: 048
     Dates: start: 20110322, end: 20110801
  13. CLOZARIL [Suspect]
     Dosage: 125 MG, UNK
     Route: 048
     Dates: start: 20110411, end: 20110413
  14. SULPIRIDE [Concomitant]
     Route: 048
  15. PROPERICIAZINE [Concomitant]
  16. ARIPIPRAZOLE [Concomitant]
     Route: 048
  17. CLOZARIL [Suspect]
     Dosage: 50 MG, UNK
     Route: 048
     Dates: start: 20110401, end: 20110403
  18. CLOZARIL [Suspect]
     Dosage: 75 MG, UNK
     Route: 048
     Dates: start: 20110404, end: 20110406
  19. FLUPHENAZINE HCL [Concomitant]
  20. OLANZAPINE [Concomitant]
     Route: 048
  21. MAGNESIUM OXIDE [Concomitant]
     Dosage: 1000 MG,
     Route: 048
  22. SENNOSIDE [Concomitant]
     Dosage: 24 MG,
     Route: 048
     Dates: start: 20110810
  23. LITHIUM CARBONATE [Concomitant]
     Dosage: 600 MG, UNK
     Route: 048
  24. CLOZARIL [Suspect]
     Dosage: 175 MG, UNK
     Route: 048
     Dates: start: 20110418, end: 20110420
  25. CLOZARIL [Suspect]
     Dosage: 300 MG, UNK
     Route: 048
     Dates: start: 20110602, end: 20110622
  26. CLOZARIL [Suspect]
     Dosage: 325 MG, UNK
     Route: 048
     Dates: start: 20110623, end: 20110629
  27. HALOPERIDOL [Concomitant]
     Route: 048
  28. ZOTEPINE [Concomitant]
     Route: 048
  29. SULTOPRIDE HYDROCHLORIDE [Concomitant]
     Route: 048
  30. PROMETHAZINE HYDROCHLORIDE [Concomitant]
     Dosage: 25 MG, UNK
     Route: 048
     Dates: start: 20110304, end: 20110519
  31. MOSAPRAMINE HYDROCHLORIDE [Concomitant]
     Route: 048
  32. PEROSPIRONE HYDROCHLORIDE HYDRATE [Concomitant]
     Route: 048
  33. CLOZARIL [Suspect]
     Dosage: 25 MG, UNK
     Route: 048
     Dates: start: 20110331, end: 20110331
  34. PERPHENAZINE [Concomitant]
     Route: 048
  35. SPIPERONE [Concomitant]
     Route: 048
  36. BLONANSERIN [Concomitant]
     Route: 048
  37. LORAZEPAM [Concomitant]
     Indication: SCHIZOPHRENIA, DISORGANISED TYPE
     Dosage: 2 MG, UNK
     Route: 048
     Dates: start: 20110801
  38. CLOZARIL [Suspect]
     Dosage: 250 MG, UNK
     Route: 048
     Dates: start: 20110519, end: 20110525
  39. RISPERIDONE [Concomitant]
     Route: 048
  40. LITHIUM CARBONATE [Concomitant]
     Indication: SCHIZOPHRENIA, DISORGANISED TYPE
     Dosage: 400 MG, UNK
     Route: 048
     Dates: start: 20110503

REACTIONS (5)
  - SUICIDE ATTEMPT [None]
  - NEUTROPENIA [None]
  - LEUKOPENIA [None]
  - AGRANULOCYTOSIS [None]
  - PYREXIA [None]
